FAERS Safety Report 9257993 (Version 1)
Quarter: 2013Q2

REPORT INFORMATION
  Report Type: Spontaneous
  Country: US (occurrence: US)
  Receive Date: 20130426
  Receipt Date: 20130426
  Transmission Date: 20140414
  Serious: No
  Sender: FDA-Public Use
  Company Number: US-B.I. PHARMACEUTICALS,INC./RIDGEFIELD-2013-BI-08878BP

PATIENT
  Age: 7 Year
  Sex: Male

DRUGS (1)
  1. CATAPRES TTS [Suspect]
     Dosage: 0.1 MG
     Route: 061

REACTIONS (2)
  - Application site rash [Unknown]
  - Off label use [Unknown]
